FAERS Safety Report 15476173 (Version 2)
Quarter: 2018Q4

REPORT INFORMATION
  Report Type: Report from Study
  Country: GB (occurrence: GB)
  Receive Date: 20181009
  Receipt Date: 20181110
  Transmission Date: 20190205
  Serious: Yes (Hospitalization)
  Sender: FDA-Public Use
  Company Number: PHHY2018GB119711

PATIENT
  Age: 60 Year
  Sex: Male

DRUGS (4)
  1. METFORMIN [Concomitant]
     Active Substance: METFORMIN HYDROCHLORIDE
     Indication: PRODUCT USED FOR UNKNOWN INDICATION
     Dosage: 1000 MG, UNK
     Route: 065
     Dates: start: 20180514
  2. ENTRESTO [Suspect]
     Active Substance: SACUBITRIL\VALSARTAN
     Indication: CARDIAC FAILURE
     Dosage: 1 DF, (49MG SACUBITRIL AND 51MG VALSARTAN)
     Route: 065
  3. INSULIN [Concomitant]
     Active Substance: INSULIN NOS
     Indication: PRODUCT USED FOR UNKNOWN INDICATION
     Dosage: 74 UNITS
     Route: 065
     Dates: start: 20030907
  4. BISOPROLOL [Concomitant]
     Active Substance: BISOPROLOL
     Indication: ARRHYTHMIA
     Dosage: 25 MG, BID
     Route: 065
     Dates: start: 201612

REACTIONS (9)
  - Acute myocardial infarction [Unknown]
  - Type 2 diabetes mellitus [Recovering/Resolving]
  - Palpitations [Recovered/Resolved]
  - Tachyarrhythmia [Recovered/Resolved]
  - Angina pectoris [Recovered/Resolved]
  - Dyspnoea [Recovered/Resolved]
  - Chest pain [Recovered/Resolved with Sequelae]
  - Emotional disorder [Unknown]
  - Troponin I increased [Unknown]

NARRATIVE: CASE EVENT DATE: 20180416
